FAERS Safety Report 8002641-1 (Version None)
Quarter: 2011Q4

REPORT INFORMATION
  Report Type: 
  Country: None (occurrence: None)
  Receive Date: 20111222
  Receipt Date: 20111115
  Transmission Date: 20120403
  Serious: Yes (Other)
  Sender: FDA-Public Use
  Company Number: PL-GLAXOSMITHKLINE-B0770412A

PATIENT
  Age: 56 Year
  Sex: Female

DRUGS (2)
  1. LAPATINIB [Suspect]
     Indication: BREAST CANCER
     Route: 065
     Dates: start: 20050101
  2. CAPECITABINE [Suspect]
     Indication: BREAST CANCER
     Route: 065
     Dates: start: 20050101

REACTIONS (6)
  - CONVULSION [None]
  - DIARRHOEA [None]
  - LUNG NEOPLASM MALIGNANT [None]
  - HEPATIC ENZYME INCREASED [None]
  - DYSPNOEA [None]
  - PULMONARY EMBOLISM [None]
